FAERS Safety Report 9400482 (Version 2)
Quarter: 2013Q3

REPORT INFORMATION
  Report Type: Spontaneous
  Country: None (occurrence: US)
  Receive Date: 20130715
  Receipt Date: 20130829
  Transmission Date: 20140515
  Serious: Yes (Other)
  Sender: FDA-Public Use
  Company Number: US-TEVA-418133USA

PATIENT
  Age: 55 Year
  Sex: Male

DRUGS (2)
  1. CYCLOBENZAPRINE [Suspect]
     Indication: INTERVERTEBRAL DISCITIS
     Route: 065
  2. OXYCODONE [Interacting]
     Indication: PAIN

REACTIONS (4)
  - Potentiating drug interaction [Recovered/Resolved]
  - Psychotic disorder [Recovered/Resolved]
  - Myoclonus [Recovered/Resolved]
  - Dystonia [Recovered/Resolved]
